FAERS Safety Report 13711076 (Version 1)
Quarter: 2017Q3

REPORT INFORMATION
  Report Type: Spontaneous
  Country: US (occurrence: US)
  Receive Date: 20170701
  Receipt Date: 20170701
  Transmission Date: 20171127
  Serious: Yes (Hospitalization)
  Sender: FDA-Public Use
  Company Number: None

PATIENT
  Age: 20 Year
  Sex: Female
  Weight: 64.35 kg

DRUGS (1)
  1. MONISTAT 7 [Suspect]
     Active Substance: MICONAZOLE NITRATE
     Indication: INFECTION
     Dosage: ?          QUANTITY:1 INJECTION(S);?
     Route: 067
     Dates: start: 20170701

REACTIONS (2)
  - Condition aggravated [None]
  - Fungal infection [None]

NARRATIVE: CASE EVENT DATE: 20170701
